FAERS Safety Report 9233638 (Version 1)
Quarter: 2013Q2

REPORT INFORMATION
  Report Type: Spontaneous
  Country: US (occurrence: US)
  Receive Date: 20130416
  Receipt Date: 20130416
  Transmission Date: 20140414
  Serious: No
  Sender: FDA-Public Use
  Company Number: US-BANPHARM-20130838

PATIENT
  Age: 20 Year
  Sex: Male
  Weight: 104.33 kg

DRUGS (1)
  1. ALEVE LIQUID GELS 220MG [Suspect]
     Route: 061

REACTIONS (3)
  - Skin irritation [Recovered/Resolved]
  - Accidental exposure to product [Unknown]
  - Incorrect storage of drug [Recovered/Resolved]
